FAERS Safety Report 4479224-3 (Version None)
Quarter: 2004Q4

REPORT INFORMATION
  Report Type: 
  Country: None (occurrence: None)
  Receive Date: 20041015
  Receipt Date: 20041004
  Transmission Date: 20050328
  Serious: Yes (Other)
  Sender: FDA-Public Use
  Company Number: 2004EU001819

PATIENT
  Age: 53 Year
  Sex: Female

DRUGS (2)
  1. PROGRAF [Suspect]
     Indication: RENAL AND PANCREAS TRANSPLANT
     Dosage: UNKNOWN/D
     Dates: start: 20010201
  2. MYCOPHENOLATE MOFETIL     (MYCOPHENOLATE MOFETIL) [Concomitant]

REACTIONS (2)
  - LEUKOCYTOSIS [None]
  - PYELONEPHRITIS ACUTE [None]
